FAERS Safety Report 19382444 (Version 1)
Quarter: 2021Q2

REPORT INFORMATION
  Report Type: Spontaneous
  Country: US (occurrence: US)
  Receive Date: 20210607
  Receipt Date: 20210607
  Transmission Date: 20210717
  Serious: Yes (Disabling, Other)
  Sender: FDA-Public Use
  Company Number: US-PFIZER INC-2020004194

PATIENT
  Age: 95 Year
  Sex: Male

DRUGS (2)
  1. CELEBREX [Suspect]
     Active Substance: CELECOXIB
     Indication: ARTHRALGIA
     Dosage: 200 MG, DAILY
     Route: 048
     Dates: end: 20200310
  2. CELEBREX [Suspect]
     Active Substance: CELECOXIB
     Dosage: 200 UNK
     Dates: end: 20200310

REACTIONS (6)
  - Pain in extremity [Unknown]
  - Body height decreased [Unknown]
  - Arthralgia [Unknown]
  - Gait disturbance [Unknown]
  - Amnesia [Unknown]
  - Drug dependence [Unknown]
